FAERS Safety Report 11796699 (Version 1)
Quarter: 2015Q4

REPORT INFORMATION
  Report Type: Spontaneous
  Country: US (occurrence: US)
  Receive Date: 20151203
  Receipt Date: 20151203
  Transmission Date: 20160305
  Serious: Yes (Hospitalization)
  Sender: FDA-Public Use
  Company Number: US-BIOGENIDEC-2015BI157860

PATIENT
  Age: 53 Year
  Sex: Female

DRUGS (1)
  1. TYSABRI [Suspect]
     Active Substance: NATALIZUMAB
     Indication: MULTIPLE SCLEROSIS
     Route: 042
     Dates: start: 20140423

REACTIONS (24)
  - Wheezing [Not Recovered/Not Resolved]
  - White blood cell count increased [Not Recovered/Not Resolved]
  - Slow speech [Recovered/Resolved]
  - Bone marrow disorder [Unknown]
  - Fatigue [Recovered/Resolved]
  - Blindness [Recovered/Resolved]
  - Altered state of consciousness [Recovered/Resolved]
  - Diplegia [Recovered/Resolved]
  - Blood sodium decreased [Recovered/Resolved]
  - Dyspnoea [Not Recovered/Not Resolved]
  - Blood magnesium decreased [Unknown]
  - Gait disturbance [Recovered/Resolved]
  - Cognitive disorder [Recovered/Resolved]
  - Cough [Not Recovered/Not Resolved]
  - Mental impairment [Recovered/Resolved]
  - Anaemia [Not Recovered/Not Resolved]
  - Aphasia [Recovered/Resolved]
  - Bronchial obstruction [Unknown]
  - Lymphadenitis [Unknown]
  - Asthma [Not Recovered/Not Resolved]
  - Peripheral swelling [Recovered/Resolved]
  - Muscle spasms [Recovered/Resolved]
  - Blood potassium decreased [Recovered/Resolved]
  - Amnesia [Recovered/Resolved]

NARRATIVE: CASE EVENT DATE: 20141101
